FAERS Safety Report 12808084 (Version 3)
Quarter: 2016Q4

REPORT INFORMATION
  Report Type: Spontaneous
  Country: US (occurrence: US)
  Receive Date: 20161004
  Receipt Date: 20161021
  Transmission Date: 20170207
  Serious: No
  Sender: FDA-Public Use
  Company Number: US-PFIZER INC-2016457686

PATIENT
  Age: 56 Year
  Sex: Female
  Weight: 71.33 kg

DRUGS (72)
  1. ASPIRIN. [Concomitant]
     Active Substance: ASPIRIN
     Dosage: 81 MG, 1X/DAY
     Route: 048
  2. METHOCARBAMOL. [Concomitant]
     Active Substance: METHOCARBAMOL
     Dosage: 1500 MG, AS NEEDED (TAKE TWO (2) TABLETS BY MOUTH THREE TIMES A DAY)
     Route: 048
  3. FISH OIL [Concomitant]
     Active Substance: FISH OIL
     Dosage: 1000 MG, 3X/DAY
     Route: 048
  4. OMEPRAZOLE. [Concomitant]
     Active Substance: OMEPRAZOLE
     Dosage: 40 MG, 1X/DAY
     Route: 048
  5. TUMS [Concomitant]
     Active Substance: CALCIUM CARBONATE
     Dosage: 500 MG DAILY (BEFORE MEALS AND AT BED TIME)
     Route: 048
  6. ZYRTEC [Concomitant]
     Active Substance: CETIRIZINE HYDROCHLORIDE
     Dosage: 10 MG, DAILY (TAKE ONE TABLET BY MOUTH AT BEDTIME)
     Route: 048
  7. ASPIRIN (E.C.) [Concomitant]
     Active Substance: ASPIRIN
     Indication: BLOOD DISORDER
     Dosage: 81 MG, DAILY
     Route: 048
  8. LIDOCAINE. [Concomitant]
     Active Substance: LIDOCAINE
     Indication: PAIN
     Dosage: 5 %, UNK (APPLY 2 PATCHES TO THE SKIN EVERY DAY FOR LEAVE ON FOR 12 HOURS THEN REMOVE FOR 12 HOURS)
     Route: 061
  9. LIDOCAINE. [Concomitant]
     Active Substance: LIDOCAINE
     Dosage: 5 %, UNK (APPLY 2 PATCHES TO THE SKIN EVERY DAY FOR LEAVE ON FOR 12 HOURS THEN REMOVE FOR 12 HOURS)
     Route: 061
  10. LYRICA [Suspect]
     Active Substance: PREGABALIN
     Indication: PAIN
     Dosage: 75 MG, 2X/DAY (TAKE AT APPROXIMATELY THE SAME TIME EACH DAY)
     Route: 048
  11. CHLORPHENIRAMINE. [Concomitant]
     Active Substance: CHLORPHENIRAMINE
     Dosage: 16 MG, 1X/DAY(EVERY 6 HOURS)
     Route: 048
  12. METOPROLOL TARTRATE. [Concomitant]
     Active Substance: METOPROLOL TARTRATE
     Indication: BLOOD PRESSURE INCREASED
     Dosage: 25 MG, 2X/DAY
     Route: 048
  13. IBUPROFEN. [Concomitant]
     Active Substance: IBUPROFEN
     Indication: PAIN
     Dosage: 800 MG, AS NEEDED (TAKE ONE TABLET THREE TIMES A DAY)
  14. ZOFRAN [Concomitant]
     Active Substance: ONDANSETRON HYDROCHLORIDE
     Indication: NAUSEA
     Dosage: 8 MG, 2X/DAY
     Route: 048
  15. LOMOTIL [Concomitant]
     Active Substance: ATROPINE SULFATE\DIPHENOXYLATE HYDROCHLORIDE
     Dosage: 1 DF, AS NEEDED (EVERY 6 HOURS)
     Route: 048
  16. GABAPENTIN. [Concomitant]
     Active Substance: GABAPENTIN
     Indication: SOMNOLENCE
     Dosage: TAKE TWO CAPSULES BY MOUTH IN THE MORNING AND AT NOON, AND TAKE 3 CAPSULES AT BEDTIME
     Route: 048
  17. LIDOCAINE. [Concomitant]
     Active Substance: LIDOCAINE
     Dosage: 5 %, UNK (APPLY 2 PATCHES TO THE SKIN EVERY DAY FOR LEAVE ON FOR 12 HOURS THEN REMOVE FOR 12 HOURS)
     Route: 061
  18. LYRICA [Suspect]
     Active Substance: PREGABALIN
     Indication: FIBROMYALGIA
     Dosage: 75 MG, 2X/DAY (TAKE AT APPROXIMATELY THE SAME TIME EACH DAY)
     Route: 048
  19. ACETAMINOPHEN. [Concomitant]
     Active Substance: ACETAMINOPHEN
     Dosage: 325 MG, AS NEEDED (EVERY 4 TO 6 HOURS)
     Route: 048
  20. ACETAMINOPHEN. [Concomitant]
     Active Substance: ACETAMINOPHEN
     Dosage: 325 MG, AS NEEDED (EVERY 4 TO 6 HOURS)
     Route: 048
  21. FENOFIBRATE. [Concomitant]
     Active Substance: FENOFIBRATE
     Dosage: 180 MG, 1X/DAY(AT BEDTIME)
     Route: 048
  22. LISINOPRIL. [Concomitant]
     Active Substance: LISINOPRIL
     Indication: RENAL DISORDER
  23. METHOCARBAMOL. [Concomitant]
     Active Substance: METHOCARBAMOL
     Indication: MUSCLE SPASMS
     Dosage: 750 MG, EVERY 4 HRS
     Route: 048
  24. METHOCARBAMOL. [Concomitant]
     Active Substance: METHOCARBAMOL
     Dosage: 1500 MG, AS NEEDED (TAKE TWO (2) TABLETS BY MOUTH THREE TIMES A DAY)
     Route: 048
  25. OMEGA-3 FATTY ACIDS [Concomitant]
     Active Substance: OMEGA-3 FATTY ACIDS
     Dosage: 340 MG, 1X/DAY
     Route: 048
  26. CODEINE AND GUAIFENESIN [Concomitant]
     Dosage: 10-100 MG/5 ML AT 10 ML Q4HP PRN
     Route: 048
  27. DULOXETINE. [Concomitant]
     Active Substance: DULOXETINE
     Dosage: 80 MG (TAKE ONE CAPSULE BY MOUTH EVERY DAY TAKE WITH A 60 MG CAPSULE [DOSE 80 MG])
  28. TRAZODONE [Concomitant]
     Active Substance: TRAZODONE HYDROCHLORIDE
     Dosage: 25 MG, 1X/DAY (TAKE 1/2 TABLET BY MOUTH AT BEDTIME)
     Route: 048
  29. ZYRTEC [Concomitant]
     Active Substance: CETIRIZINE HYDROCHLORIDE
     Indication: HYPERSENSITIVITY
     Dosage: 10 MG, DAILY (TAKE ONE TABLET BY MOUTH AT BEDTIME)
     Route: 048
  30. CHLORPHENIRAMINE. [Concomitant]
     Active Substance: CHLORPHENIRAMINE
     Indication: HYPERSENSITIVITY
     Dosage: 4 MG, AS NEEDED
     Route: 048
  31. HYDROCHLOROTHIAZIDE. [Concomitant]
     Active Substance: HYDROCHLOROTHIAZIDE
     Indication: HYPERTENSION
     Dosage: 25 MG, 1X/DAY
     Route: 048
  32. HYDROCHLOROTHIAZIDE. [Concomitant]
     Active Substance: HYDROCHLOROTHIAZIDE
     Dosage: 12.5 MG, 1X/DAY (TAKE 1/2 TABLET BY MOUTH EVERY MORNING)
     Route: 048
  33. OMEPRAZOLE. [Concomitant]
     Active Substance: OMEPRAZOLE
     Dosage: 40 MG, DAILY
     Route: 048
  34. ZANTAC [Concomitant]
     Active Substance: RANITIDINE HYDROCHLORIDE
     Indication: ABDOMINAL PAIN UPPER
     Dosage: 150 MG, 2X/DAY
     Route: 048
  35. GLUCOSAMINE [Concomitant]
     Active Substance: GLUCOSAMINE
     Dosage: 1000 MG, 2X/DAY
     Route: 048
  36. LOMOTIL [Concomitant]
     Active Substance: ATROPINE SULFATE\DIPHENOXYLATE HYDROCHLORIDE
     Indication: DIARRHOEA
     Dosage: 1 DF, AS NEEDED (EVERY 6 HOURS)
     Route: 048
  37. DULOXETINE. [Concomitant]
     Active Substance: DULOXETINE
     Dosage: 80 MG (TAKE ONE CAPSULE EVERYDAY WITH A 20 MG CAPSULE [DOSE 80MG])
     Route: 048
  38. TRAZODONE [Concomitant]
     Active Substance: TRAZODONE HYDROCHLORIDE
     Dosage: 25 MG, 1X/DAY (TAKE 1/2 TABLET BY MOUTH AT BEDTIME)
     Route: 048
  39. FENOFIBRATE. [Concomitant]
     Active Substance: FENOFIBRATE
     Indication: BLOOD TRIGLYCERIDES
     Dosage: 160 MG, 1X/DAY (AT BEDTIME)
     Route: 048
  40. FENOFIBRATE. [Concomitant]
     Active Substance: FENOFIBRATE
     Dosage: 160 MG, 1X/DAY(TAKE ONE TABLET BY MOUTH AT BEDTIME)
     Route: 048
  41. LISINOPRIL. [Concomitant]
     Active Substance: LISINOPRIL
     Indication: BLOOD PRESSURE INCREASED
     Dosage: 10 MG, 1X/DAY
     Route: 048
  42. METFORMIN [Concomitant]
     Active Substance: METFORMIN HYDROCHLORIDE
     Indication: DIABETES MELLITUS
     Dosage: 500 MG, 1X/DAY
     Route: 048
  43. METFORMIN [Concomitant]
     Active Substance: METFORMIN HYDROCHLORIDE
     Dosage: 500 MG, 2X/DAY (TAKE 2 TABLETS BY MOUTH EVERY MORNING AND TAKE 1 TABLET EVERY EVENING )
     Route: 048
  44. METHOCARBAMOL. [Concomitant]
     Active Substance: METHOCARBAMOL
     Dosage: 750 MG, 2X/DAY WHEN NECESSARY
  45. FISH OIL [Concomitant]
     Active Substance: FISH OIL
     Indication: BLOOD CHOLESTEROL
     Dosage: 1000 MG, 1X/DAY
  46. ERGOCALCIFEROL. [Concomitant]
     Active Substance: ERGOCALCIFEROL
     Dosage: 50000 IU, WEEKLY
     Route: 048
  47. MIRTAZAPINE. [Concomitant]
     Active Substance: MIRTAZAPINE
     Dosage: 15 MG (TAKE 1/2 TABLET BY MOUTH AT BEDTIME)
     Route: 048
  48. MIRTAZAPINE. [Concomitant]
     Active Substance: MIRTAZAPINE
     Dosage: 15 MG (TAKE 1/2 TABLET BY MOUTH AT BEDTIME)
     Route: 048
  49. FLUTICASONE [Concomitant]
     Active Substance: FLUTICASONE\FLUTICASONE PROPIONATE
     Dosage: 50 UG, DAILY (2 SPRAYS ITO EACH NOSTRIL)
     Route: 045
  50. ACETAMINOPHEN. [Concomitant]
     Active Substance: ACETAMINOPHEN
     Indication: PYREXIA
     Dosage: 325 MG, AS NEEDED (EVERY 4 TO 6 HOURS)
     Route: 048
  51. CHLORPHENIRAMINE. [Concomitant]
     Active Substance: CHLORPHENIRAMINE
     Indication: SOMNOLENCE
     Dosage: 16 MG, 1X/DAY(EVERY 6 HOURS)
     Route: 048
  52. FENOFIBRATE. [Concomitant]
     Active Substance: FENOFIBRATE
     Dosage: 160 MG, 1X/DAY (TAKE ONE TABLET BY MOUTH AT BEDTIME)
     Route: 048
  53. LOMOTIL [Concomitant]
     Active Substance: ATROPINE SULFATE\DIPHENOXYLATE HYDROCHLORIDE
     Dosage: 1 DF, AS NEEDED (EVERY 6 HOURS)
     Route: 048
  54. MIRTAZAPINE. [Concomitant]
     Active Substance: MIRTAZAPINE
     Dosage: 15 MG (TAKE 1/2 TABLET BY MOUTH AT BEDTIME)
     Route: 048
  55. TRAZODONE [Concomitant]
     Active Substance: TRAZODONE HYDROCHLORIDE
     Indication: SOMNOLENCE
     Dosage: 25 MG, 1X/DAY (TAKE 1/2 TABLET BY MOUTH AT BEDTIME)
     Route: 048
  56. TRAZODONE [Concomitant]
     Active Substance: TRAZODONE HYDROCHLORIDE
     Dosage: 25 MG, 1X/DAY (TAKE 1/2 TABLET BY MOUTH AT BEDTIME)
     Route: 048
  57. ACETAMINOPHEN. [Concomitant]
     Active Substance: ACETAMINOPHEN
     Indication: PAIN
     Dosage: 325 MG, EVERY 4 HRS (325 MG Q4H PRN)
     Route: 048
  58. ACETAMINOPHEN. [Concomitant]
     Active Substance: ACETAMINOPHEN
     Dosage: 325 MG, AS NEEDED (EVERY 4 TO 6 HOURS)
     Route: 048
  59. CHLORPHENIRAMINE. [Concomitant]
     Active Substance: CHLORPHENIRAMINE
     Dosage: 16 MG, 1X/DAY(EVERY 6 HOURS)
     Route: 048
  60. MAGNESIUM OXIDE. [Concomitant]
     Active Substance: MAGNESIUM OXIDE
     Dosage: 420 MG, 2X/DAY
     Route: 048
  61. RANITIDINE. [Concomitant]
     Active Substance: RANITIDINE
     Indication: ABDOMINAL DISCOMFORT
     Dosage: 75 MG, 2X/DAY
     Route: 048
  62. IBUPROFEN. [Concomitant]
     Active Substance: IBUPROFEN
     Dosage: 800 MG, AS NEEDED (TAKE ONE TABLET THREE TIMES A DAY)
  63. ZOFRAN [Concomitant]
     Active Substance: ONDANSETRON HYDROCHLORIDE
     Indication: VOMITING
     Dosage: 8 MG, 2X/DAY
     Route: 048
  64. ERGOCALCIFEROL. [Concomitant]
     Active Substance: ERGOCALCIFEROL
     Dosage: 50000 IU, WEEKLY
     Route: 048
  65. DULOXETINE. [Concomitant]
     Active Substance: DULOXETINE
     Dosage: 80 MG (TAKE ONE CAPSULE BY MOUTH EVERY DAY TAKE WITH A 60 MG CAPSULE [DOSE 80 MG])
  66. VITAMIN B12 [Concomitant]
     Active Substance: CYANOCOBALAMIN
     Dosage: 1000 UG, 1X/DAY
     Route: 048
  67. HYDROCHLOROTHIAZIDE. [Concomitant]
     Active Substance: HYDROCHLOROTHIAZIDE
     Dosage: 12.5 MG, 1X/DAY (TAKE 1/2 TABLET BY MOUTH EVERY MORNING)
     Route: 048
  68. HYDROCHLOROTHIAZIDE. [Concomitant]
     Active Substance: HYDROCHLOROTHIAZIDE
     Dosage: 12.5 MG, 1X/DAY (TAKE 1/2 TABLET BY MOUTH EVERY MORNING)
     Route: 048
  69. METHOCARBAMOL. [Concomitant]
     Active Substance: METHOCARBAMOL
     Dosage: 1500 MG, AS NEEDED (TAKE TWO (2) TABLETS BY MOUTH THREE TIMES A DAY)
     Route: 048
  70. MIRTAZAPINE. [Concomitant]
     Active Substance: MIRTAZAPINE
     Dosage: 15 MG (TAKE 1/2 TABLET BY MOUTH AT BEDTIME)
     Route: 048
  71. TUMS [Concomitant]
     Active Substance: CALCIUM CARBONATE
     Dosage: 500 MG DAILY (BEFORE MEALS AND AT BED TIME)
     Route: 048
  72. DULOXETINE. [Concomitant]
     Active Substance: DULOXETINE
     Dosage: 80 MG (TAKE ONE CAPSULE EVERYDAY WITH A 20 MG CAPSULE [DOSE 80MG])
     Route: 048

REACTIONS (2)
  - Condition aggravated [Unknown]
  - Musculoskeletal pain [Unknown]
